FAERS Safety Report 11167020 (Version 2)
Quarter: 2015Q2

REPORT INFORMATION
  Report Type: Spontaneous
  Country: IT (occurrence: IT)
  Receive Date: 20150605
  Receipt Date: 20150609
  Transmission Date: 20150821
  Serious: Yes (Other)
  Sender: FDA-Public Use
  Company Number: IT-TEVA-567369ACC

PATIENT
  Age: 56 Year
  Sex: Female

DRUGS (1)
  1. CALCIO LEVOFOLINATO TEVA - 175 MG POLVERE PER SOLUZIONE PER INFUSIONE [Suspect]
     Active Substance: LEVOLEUCOVORIN CALCIUM
     Indication: GASTRIC CANCER
     Dosage: 380 MG CYCLICAL (POWDER FOR SOLUTION FOR INFUSION)
     Route: 042
     Dates: start: 20150526, end: 20150526

REACTIONS (4)
  - Flushing [Recovered/Resolved]
  - Malaise [Recovered/Resolved]
  - Dyspnoea [Recovered/Resolved]
  - Abdominal pain upper [Recovered/Resolved]

NARRATIVE: CASE EVENT DATE: 20150526
